FAERS Safety Report 6980022-7 (Version None)
Quarter: 2010Q3

REPORT INFORMATION
  Report Type: 
  Country: None (occurrence: None)
  Receive Date: 20100914
  Receipt Date: 20100902
  Transmission Date: 20110219
  Serious: Yes (Other)
  Sender: FDA-Public Use
  Company Number: US-PFIZER INC-2010104517

PATIENT
  Sex: Male
  Weight: 69 kg

DRUGS (1)
  1. CHANTIX [Suspect]
     Indication: SMOKING CESSATION THERAPY
     Dosage: UNK, TWICE A DAY
     Route: 048
     Dates: start: 20060101

REACTIONS (1)
  - BLOOD POTASSIUM INCREASED [None]
